FAERS Safety Report 7051526-6 (Version None)
Quarter: 2010Q4

REPORT INFORMATION
  Report Type: 
  Country: None (occurrence: None)
  Receive Date: 20101014
  Receipt Date: 20100930
  Transmission Date: 20110411
  Serious: Yes (Hospitalization)
  Sender: FDA-Public Use
  Company Number: 2010MA003161

PATIENT
  Age: 53 Year
  Sex: Female

DRUGS (6)
  1. DILTIAZEM HCL [Suspect]
     Indication: HYPERTENSION
     Dosage: 30 MG; ; PO
     Route: 048
  2. FEVERALL [Suspect]
     Indication: HEADACHE
     Dosage: 450 MG;
  3. AMITRIPTILIN [Concomitant]
  4. MEFENOKSALON [Concomitant]
  5. DICLOFENAC [Concomitant]
  6. POTASSIUM CHLORIDE [Concomitant]

REACTIONS (1)
  - ACUTE GENERALISED EXANTHEMATOUS PUSTULOSIS [None]
